FAERS Safety Report 18400429 (Version 1)
Quarter: 2020Q4

REPORT INFORMATION
  Report Type: Spontaneous
  Country: JP (occurrence: JP)
  Receive Date: 20201019
  Receipt Date: 20201019
  Transmission Date: 20210114
  Serious: Yes (Other)
  Sender: FDA-Public Use
  Company Number: JP-PFIZER INC-2020393841

PATIENT
  Age: 4 Decade
  Sex: Female

DRUGS (2)
  1. IDAMYCIN [Suspect]
     Active Substance: IDARUBICIN HYDROCHLORIDE
     Indication: ACUTE PROMYELOCYTIC LEUKAEMIA
     Dosage: UNK
     Route: 041
  2. CYTARABINE. [Suspect]
     Active Substance: CYTARABINE
     Indication: ACUTE PROMYELOCYTIC LEUKAEMIA
     Dosage: UNK
     Route: 041

REACTIONS (7)
  - Fat necrosis [Unknown]
  - Cellulitis [Unknown]
  - Pyrexia [Unknown]
  - Staphylococcal bacteraemia [Unknown]
  - Angiopathy [Unknown]
  - Extravasation [Unknown]
  - Soft tissue necrosis [Unknown]
